FAERS Safety Report 6583315-0 (Version None)
Quarter: 2010Q1

REPORT INFORMATION
  Report Type: 
  Country: None (occurrence: None)
  Receive Date: 20100216
  Receipt Date: 20100208
  Transmission Date: 20100710
  Serious: Yes (Other)
  Sender: FDA-Public Use
  Company Number: CHPA2010US02808

PATIENT
  Age: 48 Year
  Sex: Male
  Weight: 113.38 kg

DRUGS (3)
  1. THERAFLU DAYTIME SEVERE COLD WARMING SYRUP (NCH) [Suspect]
     Indication: OROPHARYNGEAL PAIN
     Dosage: 2 TSP IN AM, 1 TSP 6 HOURS LATER, 2 TSP QHS
     Route: 048
     Dates: start: 20100131, end: 20100131
  2. THERAFLU DAYTIME SEVERE COLD WARMING SYRUP (NCH) [Suspect]
     Dosage: 1 TSP, BID
     Route: 048
     Dates: start: 20100201, end: 20100201
  3. CHERATUSSIN [Concomitant]
     Indication: OROPHARYNGEAL PAIN
     Dosage: UNK, UNK
     Dates: start: 20100201, end: 20100201

REACTIONS (7)
  - BLOOD PRESSURE INCREASED [None]
  - DYSPNOEA [None]
  - EYE PAIN [None]
  - FATIGUE [None]
  - HYPERSENSITIVITY [None]
  - PYREXIA [None]
  - SENSORY DISTURBANCE [None]
